FAERS Safety Report 26143569 (Version 1)
Quarter: 2025Q4

REPORT INFORMATION
  Report Type: Report from Study
  Country: US (occurrence: US)
  Receive Date: 20251211
  Receipt Date: 20251211
  Transmission Date: 20260118
  Serious: Yes (Hospitalization)
  Sender: TRAVERE THERAPEUTICS
  Company Number: US-TRAVERE-2025TVT02337

PATIENT
  Age: 48 Year
  Sex: Male
  Weight: 110 kg

DRUGS (18)
  1. FILSPARI [Suspect]
     Active Substance: SPARSENTAN
     Indication: IgA nephropathy
     Route: 048
     Dates: start: 20250128, end: 20250211
  2. FILSPARI [Suspect]
     Active Substance: SPARSENTAN
     Route: 048
     Dates: start: 20250211
  3. TRAZODONE [Concomitant]
     Active Substance: TRAZODONE HYDROCHLORIDE
  4. CIALIS [Concomitant]
     Active Substance: TADALAFIL
  5. BOTOX [Concomitant]
     Active Substance: ONABOTULINUMTOXINA
  6. FISH OIL [Concomitant]
     Active Substance: FISH OIL
  7. ZOFRAN [Concomitant]
     Active Substance: ONDANSETRON HYDROCHLORIDE
  8. COZAAR [Concomitant]
     Active Substance: LOSARTAN POTASSIUM
  9. LAMICTAL XR [Concomitant]
     Active Substance: LAMOTRIGINE
  10. PROZAC [Concomitant]
     Active Substance: FLUOXETINE HYDROCHLORIDE
  11. KERENDIA [Concomitant]
     Active Substance: FINERENONE
  12. FARXIGA [Concomitant]
     Active Substance: DAPAGLIFLOZIN PROPANEDIOL
  13. ELIQUIS [Concomitant]
     Active Substance: APIXABAN
  14. CYANOCOBALAMIN [Concomitant]
     Active Substance: CYANOCOBALAMIN
  15. THALITONE [Concomitant]
     Active Substance: CHLORTHALIDONE
  16. STRATTERA [Concomitant]
     Active Substance: ATOMOXETINE HYDROCHLORIDE
  17. ASPIRIN [Concomitant]
     Active Substance: ASPIRIN
  18. NORVASC [Concomitant]
     Active Substance: AMLODIPINE BESYLATE

REACTIONS (3)
  - Syncope [Recovered/Resolved]
  - Blood magnesium decreased [Recovering/Resolving]
  - Contraindicated product prescribed [Unknown]

NARRATIVE: CASE EVENT DATE: 20251101
